FAERS Safety Report 26204248 (Version 1)
Quarter: 2025Q4

REPORT INFORMATION
  Report Type: Spontaneous
  Country: US (occurrence: US)
  Receive Date: 20251226
  Receipt Date: 20251226
  Transmission Date: 20260118
  Serious: Yes (Death)
  Sender: NOVARTIS
  Company Number: US-002147023-NVSC2025US196878

PATIENT
  Age: 81 Year
  Sex: Male

DRUGS (2)
  1. MEKINIST [Suspect]
     Active Substance: TRAMETINIB DIMETHYL SULFOXIDE
     Indication: Lung neoplasm malignant
     Dosage: 0.5 MG, QD
     Route: 048
     Dates: start: 20250421
  2. TAFINLAR [Suspect]
     Active Substance: DABRAFENIB MESYLATE
     Indication: Lung neoplasm malignant
     Dosage: 75 MG, BID
     Route: 048
     Dates: start: 20250205

REACTIONS (1)
  - Death [Fatal]

NARRATIVE: CASE EVENT DATE: 20251211
